FAERS Safety Report 9938246 (Version 1)
Quarter: 2014Q1

REPORT INFORMATION
  Report Type: Report from Study
  Country: US (occurrence: US)
  Receive Date: 20140303
  Receipt Date: 20140303
  Transmission Date: 20141002
  Serious: No
  Sender: FDA-Public Use
  Company Number: US-ABBVIE-13P-163-1030394-00

PATIENT
  Age: 31 Year
  Sex: Female
  Weight: 67.65 kg

DRUGS (6)
  1. HUMIRA [Suspect]
     Indication: CROHN^S DISEASE
     Dates: start: 20121219, end: 20121219
  2. HUMIRA [Suspect]
     Dates: start: 20130102, end: 20130102
  3. SERTERLINE [Concomitant]
     Indication: DEPRESSION
  4. PANTOPRAZOLE [Concomitant]
     Indication: PROPHYLAXIS
  5. CLONAZEPAM [Concomitant]
     Indication: ANXIETY
  6. FLEXARIL [Concomitant]
     Indication: PAIN

REACTIONS (5)
  - Periorbital contusion [Not Recovered/Not Resolved]
  - Rash macular [Not Recovered/Not Resolved]
  - Rash macular [Not Recovered/Not Resolved]
  - Cough [Not Recovered/Not Resolved]
  - Dry skin [Not Recovered/Not Resolved]
